FAERS Safety Report 7738389-8 (Version None)
Quarter: 2011Q3

REPORT INFORMATION
  Report Type: 
  Country: None (occurrence: None)
  Receive Date: 20110908
  Receipt Date: 20110815
  Transmission Date: 20111222
  Serious: Yes (Other)
  Sender: FDA-Public Use
  Company Number: DE-PFIZER INC-2011207073

PATIENT
  Age: 43 Year
  Sex: Female

DRUGS (12)
  1. FERROUS SULFATE TAB [Suspect]
     Dosage: 20 TABLETS
     Route: 048
  2. ASPIRIN [Suspect]
     Dosage: 500 MG, UNK
     Route: 048
  3. LEVOTHYROXINE SODIUM [Suspect]
     Dosage: 75 MG, UNK
     Route: 048
  4. METAMIZOL [Suspect]
     Route: 048
  5. DICLOFENAC [Suspect]
     Dosage: 50 MG, UNK
     Route: 048
  6. SEROQUEL [Suspect]
     Dosage: 25 MG, UNK
     Route: 048
  7. IBUPROFEN [Suspect]
     Dosage: 400 MG, UNK
     Route: 048
  8. CETIRIZINE HCL [Suspect]
     Route: 048
  9. SERTRALINE HYDROCHLORIDE [Suspect]
     Dosage: 10
     Route: 048
  10. ACETAMINOPHEN [Suspect]
     Dosage: 500 MG, UNK
     Route: 048
  11. METOCLOPRAMIDE [Suspect]
     Route: 048
  12. ETHANOL [Suspect]
     Dosage: UNK
     Route: 048

REACTIONS (4)
  - MULTIPLE DRUG OVERDOSE [None]
  - HYPERTENSION [None]
  - SOMNOLENCE [None]
  - SUICIDE ATTEMPT [None]
